FAERS Safety Report 5513863-3 (Version None)
Quarter: 2007Q4

REPORT INFORMATION
  Report Type: 
  Country: None (occurrence: None)
  Receive Date: 20071109
  Receipt Date: 20071109
  Transmission Date: 20080405
  Serious: Yes (Hospitalization)
  Sender: FDA-Public Use
  Company Number: None

PATIENT
  Sex: Male
  Weight: 64 kg

DRUGS (4)
  1. CISPLATIN [Suspect]
     Dosage: 176 MG
     Dates: end: 20071023
  2. BAKING SODA RINSES [Concomitant]
  3. ORAGEL [Concomitant]
  4. OXYCONTIN [Concomitant]

REACTIONS (8)
  - BLOOD CREATININE INCREASED [None]
  - DEHYDRATION [None]
  - DYSPHAGIA [None]
  - FLUID INTAKE REDUCED [None]
  - MUCOSAL INFLAMMATION [None]
  - ORAL INTAKE REDUCED [None]
  - PAIN [None]
  - WEIGHT DECREASED [None]
